FAERS Safety Report 9062774 (Version 1)
Quarter: 2013Q1

REPORT INFORMATION
  Report Type: Spontaneous
  Country: FR (occurrence: FR)
  Receive Date: 20130129
  Receipt Date: 20130129
  Transmission Date: 20140127
  Serious: Yes (Other)
  Sender: FDA-Public Use
  Company Number: FR-009507513-1301FRA011812

PATIENT
  Sex: Male

DRUGS (5)
  1. VICTRELIS [Suspect]
     Indication: HEPATITIS C VIRUS TEST POSITIVE
     Dosage: UNK
     Route: 048
     Dates: start: 201207
  2. PEGASYS [Suspect]
     Indication: HEPATITIS C VIRUS TEST POSITIVE
     Dosage: 180 MICROGRAM, QW
     Route: 058
     Dates: start: 20120601
  3. PEGASYS [Suspect]
     Dosage: 135 MICROGRAM, QW
     Route: 058
  4. PEGASYS [Suspect]
     Dosage: 45 MICROGRAM, QW
     Route: 058
     Dates: start: 201212
  5. COPEGUS [Suspect]
     Indication: HEPATITIS C VIRUS TEST POSITIVE
     Dosage: 7 DF, QD
     Route: 048
     Dates: start: 20120601

REACTIONS (6)
  - Transaminases increased [Not Recovered/Not Resolved]
  - Gamma-glutamyltransferase increased [Not Recovered/Not Resolved]
  - Depression [Recovering/Resolving]
  - Psoriasis [Recovering/Resolving]
  - Neutropenia [Recovering/Resolving]
  - Arthralgia [Recovering/Resolving]
